FAERS Safety Report 8461727-8 (Version None)
Quarter: 2012Q2

REPORT INFORMATION
  Report Type: 
  Country: None (occurrence: None)
  Receive Date: 20120625
  Receipt Date: 20120611
  Transmission Date: 20120825
  Serious: Yes (Death)
  Sender: FDA-Public Use
  Company Number: FR-CELGENEUS-056-50794-12061999

PATIENT

DRUGS (2)
  1. VIDAZA [Suspect]
  2. VIDAZA [Suspect]
     Dosage: 75 MILLIGRAM/SQ. METER
     Route: 065

REACTIONS (3)
  - DISEASE PROGRESSION [None]
  - SEPSIS [None]
  - DEATH [None]
